FAERS Safety Report 8120722-9 (Version None)
Quarter: 2012Q1

REPORT INFORMATION
  Report Type: 
  Country: None (occurrence: None)
  Receive Date: 20120207
  Receipt Date: 20120206
  Transmission Date: 20120608
  Serious: Yes (Other)
  Sender: FDA-Public Use
  Company Number: US-BAYER-2012-011999

PATIENT
  Sex: Female

DRUGS (2)
  1. YAZ [Suspect]
     Indication: CONTRACEPTION
     Dosage: UNK
     Dates: end: 20090101
  2. YASMIN [Suspect]
     Indication: CONTRACEPTION
     Dosage: UNK
     Dates: start: 20010101

REACTIONS (7)
  - INJURY [None]
  - GALLBLADDER DISORDER [None]
  - PAIN [None]
  - GASTROINTESTINAL DISORDER [None]
  - UNEVALUABLE EVENT [None]
  - ANXIETY [None]
  - PSYCHOLOGICAL TRAUMA [None]
